FAERS Safety Report 4300046-8 (Version None)
Quarter: 2004Q1

REPORT INFORMATION
  Report Type: 
  Country: None (occurrence: None)
  Receive Date: 20040218
  Receipt Date: 20040209
  Transmission Date: 20041129
  Serious: Yes (Hospitalization)
  Sender: FDA-Public Use
  Company Number: 03P-044-0240763-00

PATIENT
  Age: 72 Year
  Sex: Female

DRUGS (3)
  1. MAVIK [Suspect]
     Dosage: 4 MG, 1 IN 1 D
     Dates: start: 20030202, end: 20030515
  2. VALSARTAN VS AMLODIPINE [Suspect]
     Indication: ESSENTIAL HYPERTENSION
     Dates: start: 19990921
  3. PENICILLIN [Concomitant]

REACTIONS (12)
  - ANAEMIA [None]
  - ATRIAL FIBRILLATION [None]
  - CARDIAC FAILURE [None]
  - DIARRHOEA [None]
  - ECZEMA [None]
  - HENOCH-SCHONLEIN PURPURA [None]
  - INFECTION [None]
  - LEG AMPUTATION [None]
  - NAUSEA [None]
  - TOE AMPUTATION [None]
  - VASCULITIS [None]
  - VOMITING [None]
